FAERS Safety Report 25657649 (Version 1)
Quarter: 2025Q3

REPORT INFORMATION
  Report Type: Spontaneous
  Country: US (occurrence: US)
  Receive Date: 20250808
  Receipt Date: 20250808
  Transmission Date: 20251021
  Serious: No
  Sender: RANBAXY
  Company Number: US-SUN PHARMACEUTICAL INDUSTRIES LTD-2024R1-464401

PATIENT
  Age: 80 Year
  Sex: Male

DRUGS (1)
  1. ODOMZO [Suspect]
     Active Substance: SONIDEGIB
     Indication: Basal cell carcinoma
     Dosage: UNK, QD, TAKE ONE CAPSULE
     Route: 048
     Dates: start: 20240625, end: 20241008

REACTIONS (5)
  - Taste disorder [Unknown]
  - Burning sensation [Unknown]
  - Weight decreased [Unknown]
  - Therapy cessation [Unknown]
  - Ageusia [Unknown]

NARRATIVE: CASE EVENT DATE: 20241008
